FAERS Safety Report 8389628-4 (Version None)
Quarter: 2012Q2

REPORT INFORMATION
  Report Type: 
  Country: None (occurrence: None)
  Receive Date: 20120528
  Receipt Date: 20120523
  Transmission Date: 20120825
  Serious: Yes (Hospitalization)
  Sender: FDA-Public Use
  Company Number: FR-ROCHE-1071870

PATIENT
  Sex: Female

DRUGS (3)
  1. MABTHERA [Suspect]
     Indication: CRYOGLOBULINAEMIA
     Dosage: SAME DOSE ON 16/SEP/2008, 25/SEP/2008
     Route: 042
     Dates: start: 20080909
  2. MABTHERA [Suspect]
     Route: 042
     Dates: start: 20081003
  3. MABTHERA [Suspect]
     Dosage: SAME DOSES ON 05/APR/2012, 12/APR/2012.
     Route: 042
     Dates: start: 20120329, end: 20120419

REACTIONS (1)
  - ATRIAL FIBRILLATION [None]
